FAERS Safety Report 8197859-1 (Version None)
Quarter: 2012Q1

REPORT INFORMATION
  Report Type: 
  Country: None (occurrence: None)
  Receive Date: 20120309
  Receipt Date: 20120301
  Transmission Date: 20120608
  Serious: Yes (Other)
  Sender: FDA-Public Use
  Company Number: BE-JNJFOC-20120301488

PATIENT
  Age: 40 Year
  Sex: Male

DRUGS (2)
  1. CIRRUS [Suspect]
     Route: 048
  2. CIRRUS [Suspect]
     Indication: PRODUCT USED FOR UNKNOWN INDICATION
     Route: 048
     Dates: start: 20120201, end: 20120201

REACTIONS (2)
  - FEELING ABNORMAL [None]
  - MALAISE [None]
